FAERS Safety Report 5325948-5 (Version None)
Quarter: 2007Q2

REPORT INFORMATION
  Report Type: 
  Country: None (occurrence: None)
  Receive Date: 20070516
  Receipt Date: 20070411
  Transmission Date: 20071010
  Serious: Yes (Other)
  Sender: FDA-Public Use
  Company Number: US-RB-004631-06

PATIENT
  Sex: Female
  Weight: 60.75 kg

DRUGS (6)
  1. SUBUTEX [Suspect]
     Indication: DRUG DEPENDENCE
     Route: 060
     Dates: start: 20060712
  2. SUBOXONE [Suspect]
     Indication: DRUG DEPENDENCE
     Route: 060
     Dates: start: 20060210, end: 20060410
  3. SUBOXONE [Suspect]
     Route: 060
     Dates: start: 20060411, end: 20060711
  4. ZOFRAN [Concomitant]
     Indication: NAUSEA
     Dates: start: 20060701
  5. PROMETHAZINE [Concomitant]
     Indication: NAUSEA
     Dosage: PHENERGAN 25MG 1-2  PRN DAILY FOR NAUSEA
     Route: 048
     Dates: start: 20060701, end: 20070315
  6. PROCARDIA [Concomitant]
     Route: 048
     Dates: start: 20070122, end: 20070224

REACTIONS (5)
  - DRUG EXPOSURE DURING PREGNANCY [None]
  - LABOUR PAIN [None]
  - NAUSEA [None]
  - PREMATURE LABOUR [None]
  - VOMITING [None]
